FAERS Safety Report 4706174-7 (Version None)
Quarter: 2005Q2

REPORT INFORMATION
  Report Type: 
  Country: None (occurrence: None)
  Receive Date: 20050204
  Receipt Date: 20050204
  Transmission Date: 20051028
  Serious: Yes (Other)
  Sender: FDA-Public Use
  Company Number: None

PATIENT
  Sex: Male
  Weight: 83.0083 kg

DRUGS (2)
  1. DILANTIN [Suspect]
     Indication: CONVULSION
     Dosage: 50MG AM / 100 MG PM
     Dates: start: 20000501
  2. TOPAMAX [Suspect]
     Indication: TRISOMY 21
     Dosage: 100 MG AM / 200MG PM
     Dates: start: 20010301

REACTIONS (1)
  - NO ADVERSE EFFECT [None]
